FAERS Safety Report 4515011-5 (Version None)
Quarter: 2004Q4

REPORT INFORMATION
  Report Type: 
  Country: None (occurrence: None)
  Receive Date: 20041129
  Receipt Date: 20041129
  Transmission Date: 20050328
  Serious: Yes (Hospitalization)
  Sender: FDA-Public Use
  Company Number: None

PATIENT
  Age: 82 Year
  Weight: 79 kg

DRUGS (1)
  1. LISINOPRIL [Suspect]
     Dosage: 5MG  QD  ORAL
     Route: 048
     Dates: start: 20040719, end: 20040721

REACTIONS (3)
  - GAIT DISTURBANCE [None]
  - HYPOTENSION [None]
  - VISION BLURRED [None]
